FAERS Safety Report 8833635 (Version 3)
Quarter: 2012Q4

REPORT INFORMATION
  Report Type: 
  Country: JP (occurrence: JP)
  Receive Date: 20121010
  Receipt Date: 20121205
  Transmission Date: 20130627
  Serious: Yes (Hospitalization, Other)
  Sender: FDA-Public Use
  Company Number: JP-PFIZER INC-2012244500

PATIENT
  Age: 28 Year
  Sex: Female

DRUGS (7)
  1. LEVETIRACETAM [Suspect]
     Dosage: 500 mg, 2x/day
     Route: 048
  2. LEVETIRACETAM [Suspect]
     Dosage: 3000mg daily
  3. LEVETIRACETAM [Suspect]
     Dosage: 6000mg daily
  4. GABAPEN [Suspect]
     Indication: PARTIAL SEIZURES WITH SECONDARY GENERALISATION
     Dosage: 1000mg daily
  5. LAMOTRIGINE [Suspect]
     Indication: PARTIAL SEIZURES WITH SECONDARY GENERALISATION
     Dosage: 400mg daily
     Route: 048
  6. PHENOBARBITAL [Suspect]
     Indication: PARTIAL SEIZURES WITH SECONDARY GENERALISATION
     Dosage: 150mg daily
  7. DIAPP [Concomitant]
     Indication: PARTIAL SEIZURES WITH SECONDARY GENERALISATION
     Dosage: 20 mg, as needed
     Route: 054

REACTIONS (3)
  - Weight decreased [Recovered/Resolved]
  - Hypersomnia [Recovered/Resolved]
  - Gastrointestinal hypomotility [Recovered/Resolved]
